FAERS Safety Report 6537496-5 (Version None)
Quarter: 2010Q1

REPORT INFORMATION
  Report Type: 
  Country: None (occurrence: None)
  Receive Date: 20100114
  Receipt Date: 20091215
  Transmission Date: 20100710
  Serious: No
  Sender: FDA-Public Use
  Company Number: US-BAYER-200917895BCC

PATIENT
  Age: 59 Year
  Sex: Female
  Weight: 64 kg

DRUGS (4)
  1. ALEVE (CAPLET) [Suspect]
     Indication: ARTHRALGIA
     Dosage: TOTAL DAILY DOSE: 440 MG  UNIT DOSE: 220 MG
     Route: 048
     Dates: start: 20091214
  2. PROZAC [Concomitant]
     Route: 065
  3. VICODIN [Concomitant]
     Route: 065
     Dates: end: 20091001
  4. IBUPROFEN [Concomitant]
     Route: 065
     Dates: end: 20091001

REACTIONS (8)
  - BURNING SENSATION [None]
  - EXCORIATION [None]
  - HEAD DISCOMFORT [None]
  - HYPERSENSITIVITY [None]
  - OEDEMA PERIPHERAL [None]
  - POOR QUALITY SLEEP [None]
  - PRURITUS [None]
  - SWELLING FACE [None]
